FAERS Safety Report 11890290 (Version 2)
Quarter: 2016Q1

REPORT INFORMATION
  Report Type: Spontaneous
  Country: US (occurrence: US)
  Receive Date: 20160105
  Receipt Date: 20160111
  Transmission Date: 20160526
  Serious: Yes (Hospitalization, Other)
  Sender: FDA-Public Use
  Company Number: US-GLAXOSMITHKLINE-US2015GSK184264

PATIENT
  Age: 62 Year
  Sex: Female

DRUGS (4)
  1. ADVAIR HFA [Suspect]
     Active Substance: FLUTICASONE PROPIONATE\SALMETEROL XINAFOATE
     Indication: ASTHMA
  2. ADVAIR HFA [Suspect]
     Active Substance: FLUTICASONE PROPIONATE\SALMETEROL XINAFOATE
     Indication: CHRONIC OBSTRUCTIVE PULMONARY DISEASE
     Dosage: 500/50 UG, UNK
     Route: 055
     Dates: start: 1995
  3. ADVAIR HFA [Suspect]
     Active Substance: FLUTICASONE PROPIONATE\SALMETEROL XINAFOATE
     Indication: EMPHYSEMA
  4. ADVAIR HFA [Suspect]
     Active Substance: FLUTICASONE PROPIONATE\SALMETEROL XINAFOATE
     Indication: PULMONARY EMBOLISM

REACTIONS (15)
  - Abdominal pain [Unknown]
  - Blood potassium decreased [Unknown]
  - Drug dose omission [Unknown]
  - Malaise [Unknown]
  - Spinal fracture [Unknown]
  - Vomiting [Unknown]
  - Infection [Unknown]
  - Spinal disorder [Unknown]
  - Dehydration [Unknown]
  - Blood magnesium decreased [Unknown]
  - Hospitalisation [Recovered/Resolved]
  - Fall [Unknown]
  - Hand fracture [Unknown]
  - Diarrhoea [Unknown]
  - Pain [Unknown]

NARRATIVE: CASE EVENT DATE: 2015
